FAERS Safety Report 16237240 (Version 2)
Quarter: 2019Q3

REPORT INFORMATION
  Report Type: Spontaneous
  Country: CA (occurrence: CA)
  Receive Date: 20190425
  Receipt Date: 20190710
  Transmission Date: 20191004
  Serious: Yes (Other)
  Sender: FDA-Public Use
  Company Number: CA-CELLTRION INC.-2016CA014564

PATIENT

DRUGS (14)
  1. INFLECTRA [Suspect]
     Active Substance: INFLIXIMAB-DYYB
     Indication: CROHN^S DISEASE
     Dosage: 324.5 MG, (EVERY 8 WEEKS FOR 12 MONTHS)
     Route: 042
  2. ELAVIL [Concomitant]
     Active Substance: AMITRIPTYLINE HYDROCHLORIDE
     Dosage: 1 DF, AS NEEDED AT NIGHT
     Route: 048
  3. INFLECTRA [Suspect]
     Active Substance: INFLIXIMAB-DYYB
     Dosage: 333 MG, EVERY 6 WEEKS
     Route: 042
     Dates: start: 20180105
  4. APO MOMETASONE [Concomitant]
     Active Substance: MOMETASONE
     Indication: NASAL DISORDER
     Dosage: 50 MG, 1-2 TIMES PER DAY
     Route: 045
     Dates: start: 20170430
  5. INFLECTRA [Suspect]
     Active Substance: INFLIXIMAB-DYYB
     Dosage: 324.5 MG, EVERY 8 WEEKS
     Route: 042
     Dates: start: 20161118, end: 20171013
  6. INFLECTRA [Suspect]
     Active Substance: INFLIXIMAB-DYYB
     Dosage: 5 MG/KG, EVERY 6 WEEKS
     Route: 042
     Dates: start: 20181029
  7. INFLECTRA [Suspect]
     Active Substance: INFLIXIMAB-DYYB
     Dosage: 333 MG, EVERY 6 WEEKS
     Route: 042
     Dates: start: 20171124
  8. DILAUDID [Concomitant]
     Active Substance: HYDROMORPHONE HYDROCHLORIDE
     Dosage: UNK
  9. INFLECTRA [Suspect]
     Active Substance: INFLIXIMAB-DYYB
     Dosage: 333 MG, EVERY 6 WEEKS
     Route: 042
     Dates: start: 20180105
  10. INFLECTRA [Suspect]
     Active Substance: INFLIXIMAB-DYYB
     Dosage: 333 MG, EVERY 6 WEEKS
     Route: 042
     Dates: start: 20180216
  11. INFLECTRA [Suspect]
     Active Substance: INFLIXIMAB-DYYB
     Dosage: 5 MG/KG, EVERY 6 WEEKS
     Route: 042
     Dates: start: 20190416
  12. INFLECTRA [Suspect]
     Active Substance: INFLIXIMAB-DYYB
     Dosage: 333 MG, EVERY 6 WEEKS
     Route: 042
     Dates: start: 20180329
  13. CICLESONIDE [Concomitant]
     Active Substance: CICLESONIDE
     Indication: NASAL DISORDER
     Dosage: 50 MG,1-2 TIMES PER DAY
     Route: 045
     Dates: start: 20170430
  14. INFLECTRA [Suspect]
     Active Substance: INFLIXIMAB-DYYB
     Dosage: 5 MG/KG, EVERY 6 WEEKS
     Route: 042
     Dates: start: 20190305

REACTIONS (14)
  - Therapeutic response unexpected [Recovering/Resolving]
  - Pre-existing condition improved [Recovering/Resolving]
  - Abdominal pain upper [Not Recovered/Not Resolved]
  - Weight decreased [Recovered/Resolved]
  - Abdominal pain [Unknown]
  - Arthritis [Unknown]
  - Blood pressure fluctuation [Unknown]
  - Gastric ulcer [Unknown]
  - Nasopharyngitis [Unknown]
  - Insomnia [Unknown]
  - Off label use [Unknown]
  - Stress [Unknown]
  - Condition aggravated [Unknown]
  - Malaise [Unknown]

NARRATIVE: CASE EVENT DATE: 2017
